FAERS Safety Report 8325366-1 (Version None)
Quarter: 2012Q2

REPORT INFORMATION
  Report Type: 
  Country: None (occurrence: None)
  Receive Date: 20120501
  Receipt Date: 20100415
  Transmission Date: 20120825
  Serious: No
  Sender: FDA-Public Use
  Company Number: US-TEVA-2010002231

PATIENT
  Sex: Female
  Weight: 83.99 kg

DRUGS (9)
  1. ACIPHEX [Concomitant]
     Indication: GASTROOESOPHAGEAL REFLUX DISEASE
     Dosage: 20 MILLIGRAM;
     Dates: start: 20080101
  2. MELATONIN [Concomitant]
  3. VIVELLE [Concomitant]
     Dates: start: 20000101
  4. NUVIGIL [Suspect]
     Indication: SOMNOLENCE
     Dosage: 150 MILLIGRAM;
     Route: 048
     Dates: start: 20100414
  5. KLONOPIN [Concomitant]
     Dosage: 2 MILLIGRAM;
     Dates: start: 20090101
  6. NASONEX [Concomitant]
     Dates: start: 20020101
  7. REQUIP [Concomitant]
     Indication: RESTLESS LEGS SYNDROME
     Dosage: .25 MILLIGRAM;
  8. LAMICTAL [Concomitant]
     Indication: BIPOLAR DISORDER
     Dosage: 100 MILLIGRAM;
     Dates: start: 20010101
  9. MIRALAX [Concomitant]
     Indication: CONSTIPATION
     Dates: start: 20040101

REACTIONS (6)
  - NAUSEA [None]
  - DYSPNOEA [None]
  - DIZZINESS [None]
  - INSOMNIA [None]
  - CHEST DISCOMFORT [None]
  - HEADACHE [None]
